FAERS Safety Report 8080957-0 (Version None)
Quarter: 2012Q1

REPORT INFORMATION
  Report Type: 
  Country: None (occurrence: None)
  Receive Date: 20120130
  Receipt Date: 20120119
  Transmission Date: 20120608
  Serious: Yes (Hospitalization)
  Sender: FDA-Public Use
  Company Number: JP-MERCK-1112USA03321

PATIENT
  Age: 77 Year
  Sex: Female

DRUGS (4)
  1. ZETIA [Concomitant]
     Indication: HYPERLIPIDAEMIA
     Route: 048
  2. OPALMON [Concomitant]
     Indication: LUMBAR SPINAL STENOSIS
     Route: 048
  3. FOSAMAX [Suspect]
     Indication: OSTEOPOROSIS
     Route: 048
     Dates: end: 20110401
  4. FAMOTIDINE [Concomitant]
     Indication: GASTRIC ULCER
     Route: 048

REACTIONS (1)
  - FEMUR FRACTURE [None]
